FAERS Safety Report 4489743-1 (Version None)
Quarter: 2004Q4

REPORT INFORMATION
  Report Type: 
  Country: None (occurrence: None)
  Receive Date: 20041026
  Receipt Date: 20040831
  Transmission Date: 20050328
  Serious: Yes (Other)
  Sender: FDA-Public Use
  Company Number: 2004064519

PATIENT
  Age: 55 Year
  Sex: Male

DRUGS (4)
  1. CEFOPERAZONE SODIUM [Suspect]
     Indication: GALLBLADDER EMPYEMA
     Dosage: 4 GRAM (2 GRAM, 2 IN 1 D), INTRAVENOUS
     Route: 042
     Dates: start: 20040315, end: 20040317
  2. MAGNEX (CEFOPERAZONE, SULBACTAM) [Suspect]
     Indication: GALLBLADDER EMPYEMA
     Dosage: 4 GRAM (2 GRAM, 2 IN 1 D), INTRAVENOUS
     Route: 042
     Dates: start: 20040318, end: 20040320
  3. AMIKACIN [Concomitant]
  4. METRONIDAZOLE [Concomitant]

REACTIONS (2)
  - PYREXIA [None]
  - SEPSIS [None]
